FAERS Safety Report 8445180-6 (Version None)
Quarter: 2012Q2

REPORT INFORMATION
  Report Type: 
  Country: None (occurrence: None)
  Receive Date: 20120612
  Receipt Date: 20120612
  Transmission Date: 20120825
  Serious: Yes (Hospitalization)
  Sender: FDA-Public Use
  Company Number: None

PATIENT
  Age: 70 Year
  Sex: Male
  Weight: 85 kg

DRUGS (1)
  1. DAPTOMYCIN [Suspect]
     Indication: ENTEROCOCCAL INFECTION
     Dosage: 700MG DAILY IV
     Route: 042
     Dates: start: 20120415, end: 20120525

REACTIONS (2)
  - EOSINOPHIL COUNT INCREASED [None]
  - DYSPNOEA [None]
